FAERS Safety Report 18144797 (Version 1)
Quarter: 2020Q3

REPORT INFORMATION
  Report Type: Spontaneous
  Country: US (occurrence: US)
  Receive Date: 20200812
  Receipt Date: 20200812
  Transmission Date: 20201103
  Serious: No
  Sender: FDA-Public Use
  Company Number: None

PATIENT

DRUGS (1)
  1. LOVE OF DREAM ANTIBACTERIAL WIPES (BENZETHONIUM CHLORIDE) [Suspect]
     Active Substance: BENZETHONIUM CHLORIDE
     Indication: COVID-19 PROPHYLAXIS
     Dosage: ?          OTHER STRENGTH:NOT LISTED;?

REACTIONS (3)
  - Physical product label issue [None]
  - Product formulation issue [None]
  - Product label issue [None]
